FAERS Safety Report 4629219-1 (Version None)
Quarter: 2005Q2

REPORT INFORMATION
  Report Type: 
  Country: None (occurrence: None)
  Receive Date: 20050405
  Receipt Date: 20050322
  Transmission Date: 20051028
  Serious: Yes (Other)
  Sender: FDA-Public Use
  Company Number: 2004BI002247

PATIENT
  Age: 53 Year
  Sex: Female

DRUGS (5)
  1. AVONEX [Suspect]
     Indication: MULTIPLE SCLEROSIS
     Dosage: 30 UG; QW; IM
     Route: 030
     Dates: start: 20030806
  2. BACLOFEN [Concomitant]
  3. FLEXERIL [Concomitant]
  4. SINGULAIR [Concomitant]
  5. BEXTRA [Concomitant]

REACTIONS (1)
  - BREAST CANCER [None]
